FAERS Safety Report 14068548 (Version 13)
Quarter: 2023Q4

REPORT INFORMATION
  Report Type: Spontaneous
  Country: US (occurrence: US)
  Receive Date: 20171010
  Receipt Date: 20231129
  Transmission Date: 20240110
  Serious: Yes (Hospitalization)
  Sender: FDA-Public Use
  Company Number: US-PFIZER INC-2017434632

PATIENT
  Age: 75 Year
  Sex: Female
  Weight: 75 kg

DRUGS (16)
  1. IBRANCE [Suspect]
     Active Substance: PALBOCICLIB
     Indication: Breast cancer metastatic
     Dosage: QOD D1 -21 Q 28 D
     Dates: start: 201701
  2. IBRANCE [Suspect]
     Active Substance: PALBOCICLIB
     Indication: Cholangiocarcinoma
     Dosage: ONCE A DAY FOR 21 DAYS
     Route: 048
     Dates: start: 201701
  3. IBRANCE [Suspect]
     Active Substance: PALBOCICLIB
     Indication: Metastases to liver
     Dosage: 100 MG, CYCLIC (IBRANCE (CAPSULE) -1 CAPSULE (OF 100 MG) ORAL Q 2 DAYS FOR 21 DAYS)
     Route: 048
     Dates: start: 20170109, end: 20200415
  4. IBRANCE [Suspect]
     Active Substance: PALBOCICLIB
     Indication: Bone cancer
     Dosage: 125 MG, CYCLIC (IBRANCE (CAPSULE) -1 CAPSULE (OF 125 MG) ORAL DAILY FOR 21 DAYS)
     Route: 048
     Dates: start: 20170202, end: 20180717
  5. IBRANCE [Suspect]
     Active Substance: PALBOCICLIB
     Indication: Metastases to lung
     Dosage: ONCE A DAY FOR 21 DAYS
     Route: 048
     Dates: start: 201710
  6. IBRANCE [Suspect]
     Active Substance: PALBOCICLIB
     Dosage: DAILY FOR 21 DAYS
     Route: 048
     Dates: start: 20180717, end: 20190409
  7. IBRANCE [Suspect]
     Active Substance: PALBOCICLIB
     Dosage: 100 MG, ALTERNATE DAY
     Dates: start: 20190411
  8. IBRANCE [Suspect]
     Active Substance: PALBOCICLIB
     Dosage: 100 UNK
     Dates: start: 20200610, end: 20220329
  9. BUMEX [Concomitant]
     Active Substance: BUMETANIDE
     Indication: Fluid retention
     Dosage: UNK, 1X/DAY (ONCE A DAY)
     Dates: start: 1980
  10. POTASSIUM [Concomitant]
     Active Substance: POTASSIUM
     Dosage: 2 DF, DAILY (2 TABLETS A DAY BY MOUTH)
     Route: 048
     Dates: start: 1975
  11. ENALAPRIL [Concomitant]
     Active Substance: ENALAPRIL
     Indication: Blood pressure abnormal
     Dosage: 1 DF, 2X/DAY (ONE TABLET TWICE A DAY)
     Dates: start: 1975
  12. ATENOLOL [Concomitant]
     Active Substance: ATENOLOL
     Indication: Cardiac disorder
     Dosage: 1 DF, 1X/DAY (ONE TABLET ONCE A DAY BY MOUTH)
     Route: 048
     Dates: start: 1987
  13. LEVOTHYROXINE [Concomitant]
     Active Substance: LEVOTHYROXINE
     Indication: Thyroid disorder
     Dosage: 0.5 MG, 1X/DAY (ONE TABLET ONCE A DAY BY MOUTH)
     Route: 048
     Dates: start: 2015
  14. PANTOPRAZOLE [Concomitant]
     Active Substance: PANTOPRAZOLE
     Indication: Gastrointestinal disorder
     Dosage: 1 DF, 1X/DAY (ONE TABLET ONCE A DAY)
     Dates: start: 2017
  15. LETROZOLE [Concomitant]
     Active Substance: LETROZOLE
     Dosage: UNK
  16. LEXITAL [Concomitant]
     Dosage: UNK

REACTIONS (4)
  - Viral upper respiratory tract infection [Recovered/Resolved]
  - Malaise [Not Recovered/Not Resolved]
  - White blood cell count abnormal [Unknown]
  - Off label use [Unknown]

NARRATIVE: CASE EVENT DATE: 20170901
